FAERS Safety Report 6809300-9 (Version None)
Quarter: 2010Q2

REPORT INFORMATION
  Report Type: 
  Country: None (occurrence: None)
  Receive Date: 20100630
  Receipt Date: 20100621
  Transmission Date: 20101027
  Serious: Yes (Hospitalization)
  Sender: FDA-Public Use
  Company Number: CH-BRISTOL-MYERS SQUIBB COMPANY-15161813

PATIENT
  Age: 76 Year
  Sex: Male

DRUGS (7)
  1. GLUCOPHAGE [Suspect]
     Route: 048
     Dates: end: 20100327
  2. LANTUS [Suspect]
     Dosage: DISCONTINUED ON 27MAR10 RE-INTRODUCED ON AN UNK DATE
     Route: 058
  3. ACTOS [Suspect]
     Route: 048
     Dates: end: 20100327
  4. AMARYL [Suspect]
     Route: 048
     Dates: end: 20100327
  5. ASPIRIN [Concomitant]
  6. MEVALOTIN [Concomitant]
     Route: 048
  7. DETRUSITOL [Concomitant]
     Route: 048

REACTIONS (2)
  - HYPOGLYCAEMIA [None]
  - SOMNOLENCE [None]
